FAERS Safety Report 14777409 (Version 1)
Quarter: 2018Q2

REPORT INFORMATION
  Report Type: Report from Study
  Country: US (occurrence: US)
  Receive Date: 20180419
  Receipt Date: 20180419
  Transmission Date: 20180711
  Serious: Yes (Other)
  Sender: FDA-Public Use
  Company Number: US-AMGEN-USASL2018044676

PATIENT
  Sex: Female
  Weight: 97.52 kg

DRUGS (1)
  1. REPATHA [Suspect]
     Active Substance: EVOLOCUMAB
     Indication: LOW DENSITY LIPOPROTEIN INCREASED
     Dosage: 140 MG, Q2WK
     Route: 058
     Dates: start: 2017

REACTIONS (3)
  - Blood thyroid stimulating hormone increased [Recovering/Resolving]
  - Hepatic steatosis [Unknown]
  - Kidney fibrosis [Unknown]
